FAERS Safety Report 6244706-0 (Version None)
Quarter: 2009Q2

REPORT INFORMATION
  Report Type: 
  Country: None (occurrence: None)
  Receive Date: 20090623
  Receipt Date: 20090623
  Transmission Date: 20091009
  Serious: Yes (Other)
  Sender: FDA-Public Use
  Company Number: None

PATIENT
  Age: 40 Year
  Sex: Male
  Weight: 128.368 kg

DRUGS (1)
  1. DIOVAN HCT [Suspect]
     Indication: HYPERTENSION
     Dosage: 1 PILL PER DAY PO
     Route: 048
     Dates: start: 20020901, end: 20090610

REACTIONS (4)
  - ANXIETY [None]
  - COUGH [None]
  - HEADACHE [None]
  - WEIGHT INCREASED [None]
